FAERS Safety Report 14936605 (Version 2)
Quarter: 2018Q3

REPORT INFORMATION
  Report Type: Report from Study
  Country: None (occurrence: BR)
  Receive Date: 20180525
  Receipt Date: 20180731
  Transmission Date: 20181010
  Serious: Yes (Other)
  Sender: FDA-Public Use
  Company Number: BR-ABBVIE-18K-020-2313528-00

PATIENT
  Age: 14 Year
  Sex: Male
  Weight: 50 kg

DRUGS (1)
  1. HUMIRA [Suspect]
     Active Substance: ADALIMUMAB
     Indication: JUVENILE IDIOPATHIC ARTHRITIS
     Route: 058
     Dates: start: 20170821, end: 20180219

REACTIONS (12)
  - Visual impairment [Unknown]
  - Asthenia [Unknown]
  - Dizziness [Unknown]
  - Blood creatine phosphokinase abnormal [Unknown]
  - Headache [Recovered/Resolved]
  - Intracranial pressure increased [Recovered/Resolved]
  - Spinal pain [Recovered/Resolved]
  - Myositis [Unknown]
  - Fatigue [Recovered/Resolved]
  - Calcium metabolism disorder [Unknown]
  - Vitamin D decreased [Unknown]
  - Myalgia [Recovered/Resolved]

NARRATIVE: CASE EVENT DATE: 2018
